FAERS Safety Report 5959659-X (Version None)
Quarter: 2008Q4

REPORT INFORMATION
  Report Type: 
  Country: None (occurrence: None)
  Receive Date: 20081120
  Receipt Date: 20081105
  Transmission Date: 20090506
  Serious: Yes (Hospitalization)
  Sender: FDA-Public Use
  Company Number: GXKR2006US06147

PATIENT
  Age: 30 Year
  Sex: Female

DRUGS (3)
  1. CLOMIPHENE (NGX) [Suspect]
     Indication: OVARIAN DISORDER
     Dosage: 50 MG, QD
  2. LETROZOLE [Suspect]
     Indication: OVULATION INDUCTION
  3. CHORIONIC GONADOTROPIN [Suspect]
     Dosage: 3300 IU, UNK

REACTIONS (17)
  - ALANINE AMINOTRANSFERASE INCREASED [None]
  - ASPARTATE AMINOTRANSFERASE INCREASED [None]
  - BLOOD BILIRUBIN INCREASED [None]
  - BLOOD OSMOLARITY DECREASED [None]
  - BLOOD SODIUM DECREASED [None]
  - DIZZINESS [None]
  - HEART RATE INCREASED [None]
  - HYPERTENSION [None]
  - INAPPROPRIATE ANTIDIURETIC HORMONE SECRETION [None]
  - MUSCULAR WEAKNESS [None]
  - NAUSEA [None]
  - PORPHYRIA ACUTE [None]
  - PORPHYRINS URINE INCREASED [None]
  - SOMNOLENCE [None]
  - URINARY RETENTION [None]
  - URINE DELTA AMINOLEVULINATE [None]
  - URINE PORPHOBILINOGEN INCREASED [None]
